FAERS Safety Report 26199759 (Version 1)
Quarter: 2025Q4

REPORT INFORMATION
  Report Type: Spontaneous
  Country: GB (occurrence: None)
  Receive Date: 20251225
  Receipt Date: 20251225
  Transmission Date: 20260118
  Serious: Yes (Hospitalization, Disabling, Other)
  Sender: ORGANON
  Company Number: None

PATIENT
  Age: 44 Year
  Sex: Male
  Weight: 94 kg

DRUGS (1)
  1. MONTELUKAST [Suspect]
     Active Substance: MONTELUKAST
     Indication: Asthma
     Dosage: UNK
     Dates: start: 20180601, end: 20211101

REACTIONS (4)
  - Major depression [Recovered/Resolved with Sequelae]
  - Anxiety [Not Recovered/Not Resolved]
  - Medication error [Unknown]
  - Product use in unapproved indication [Unknown]

NARRATIVE: CASE EVENT DATE: 20180601
